FAERS Safety Report 19483927 (Version 1)
Quarter: 2021Q3

REPORT INFORMATION
  Report Type: Report from Study
  Country: US (occurrence: US)
  Receive Date: 20210701
  Receipt Date: 20210701
  Transmission Date: 20211014
  Serious: Yes (Hospitalization)
  Sender: FDA-Public Use
  Company Number: US-TAKEDA-2021TUS031839

PATIENT
  Sex: Female
  Weight: 73 kg

DRUGS (20)
  1. DIPHENHYDRAMINE. [Concomitant]
     Active Substance: DIPHENHYDRAMINE
  2. HEPARIN [Concomitant]
     Active Substance: HEPARIN SODIUM
  3. PYRIDOSTIGMINE BROMIDE. [Concomitant]
     Active Substance: PYRIDOSTIGMINE BROMIDE
  4. LIDOCAINE. [Concomitant]
     Active Substance: LIDOCAINE
     Route: 065
  5. HUMAN NORMAL IMMUNOGLOBULIN; LIQUID [Suspect]
     Active Substance: HUMAN IMMUNOGLOBULIN G
     Indication: MYASTHENIA GRAVIS
     Dosage: 2000 MILLIGRAM/KILOGRAM
     Route: 042
     Dates: start: 20210108
  6. HUMAN NORMAL IMMUNOGLOBULIN; LIQUID [Suspect]
     Active Substance: HUMAN IMMUNOGLOBULIN G
     Dosage: 30 GRAM, Q4WEEKS
     Route: 042
     Dates: start: 20210108
  7. OMEGA?3 ACIDS [Concomitant]
     Active Substance: OMEGA-3 FATTY ACIDS
  8. SODIUM CHLORIDE. [Concomitant]
     Active Substance: SODIUM CHLORIDE
  9. LMX4 [Concomitant]
     Active Substance: LIDOCAINE
  10. ALLOPURINOL. [Concomitant]
     Active Substance: ALLOPURINOL
  11. CHOLEST CARE [Concomitant]
     Route: 065
  12. JANUVIA [Concomitant]
     Active Substance: SITAGLIPTIN PHOSPHATE
  13. CALCIUM PLUS D [Concomitant]
     Active Substance: CALCIUM\VITAMIN D
  14. COENZYME Q10 [Concomitant]
     Active Substance: DIETARY SUPPLEMENT\UBIDECARENONE
  15. VITAMIN D3 [Concomitant]
     Active Substance: CHOLECALCIFEROL
  16. POTASSIUM [Concomitant]
     Active Substance: POTASSIUM
  17. EPINEPHRINE. [Concomitant]
     Active Substance: EPINEPHRINE
  18. ZETIA [Concomitant]
     Active Substance: EZETIMIBE
  19. ACETAMINOPHEN. [Concomitant]
     Active Substance: ACETAMINOPHEN
  20. LOSARTAN. [Concomitant]
     Active Substance: LOSARTAN

REACTIONS (7)
  - Infusion site rash [Unknown]
  - Pain [Unknown]
  - Pruritus [Unknown]
  - Swelling [Unknown]
  - Infusion site swelling [Unknown]
  - Infusion related reaction [Unknown]
  - Rash macular [Unknown]
